FAERS Safety Report 17292728 (Version 1)
Quarter: 2020Q1

REPORT INFORMATION
  Report Type: Spontaneous
  Country: FR (occurrence: FR)
  Receive Date: 20200121
  Receipt Date: 20200121
  Transmission Date: 20200409
  Serious: Yes (Other)
  Sender: FDA-Public Use
  Company Number: FR-BAYER-2020-000690

PATIENT
  Age: 34 Year
  Sex: Female
  Weight: 77 kg

DRUGS (1)
  1. MIRENA [Suspect]
     Active Substance: LEVONORGESTREL
     Indication: CONTRACEPTION
     Dosage: UNK, CONT
     Route: 015
     Dates: start: 20180305, end: 20191120

REACTIONS (21)
  - Hunger [Recovered/Resolved]
  - Device dislocation [Recovering/Resolving]
  - Breast mass [Recovered/Resolved]
  - Weight decreased [None]
  - Malaise [Recovered/Resolved]
  - Menometrorrhagia [None]
  - Amenorrhoea [Recovered/Resolved]
  - Uterine contractions abnormal [Recovered/Resolved]
  - Pelvic pain [Recovering/Resolving]
  - Breast swelling [Recovered/Resolved]
  - Loss of libido [Recovered/Resolved]
  - Breast pain [Recovered/Resolved]
  - Depression [None]
  - Depression [Recovering/Resolving]
  - Insomnia [Recovered/Resolved]
  - Breast induration [Recovered/Resolved]
  - Burnout syndrome [Recovering/Resolving]
  - Quality of life decreased [Recovering/Resolving]
  - Weight decreased [Recovered/Resolved]
  - Decreased appetite [Recovered/Resolved]
  - Weight increased [Recovered/Resolved]

NARRATIVE: CASE EVENT DATE: 201803
